FAERS Safety Report 5266956-2 (Version None)
Quarter: 2007Q1

REPORT INFORMATION
  Report Type: 
  Country: None (occurrence: None)
  Receive Date: 20070312
  Receipt Date: 20070222
  Transmission Date: 20070707
  Serious: Yes (Hospitalization)
  Sender: FDA-Public Use
  Company Number: 2007S1000237

PATIENT
  Age: 57 Year
  Sex: Male

DRUGS (9)
  1. DARVOCET-N 100 [Suspect]
     Indication: PAIN
     Dosage: PO
     Route: 048
     Dates: start: 20070207, end: 20070209
  2. VICODIN [Suspect]
     Indication: PAIN
     Dosage: PO
     Route: 048
     Dates: start: 20070101, end: 20070207
  3. OXYCONTIN [Suspect]
     Dosage: PO
     Route: 048
     Dates: start: 20070101, end: 20070209
  4. FENTANYL [Suspect]
     Indication: PAIN
     Dosage: PO
     Route: 048
     Dates: start: 20070101, end: 20070209
  5. AMBIEN [Suspect]
     Indication: INSOMNIA
     Dosage: PO
     Route: 048
     Dates: start: 20070101, end: 20070209
  6. COUMADIN [Suspect]
     Dosage: PO
     Route: 048
     Dates: start: 20070101
  7. DILAUDID [Suspect]
     Dosage: PO
     Route: 048
     Dates: start: 20070101, end: 20070209
  8. UNSPECIFIED ANTIDEPRESSANT [Suspect]
     Indication: DEPRESSION
     Dates: start: 20070101, end: 20070209
  9. UNSPECIFIED MUSCLE RELAXANT [Suspect]
     Indication: MUSCLE SPASMS
     Dates: start: 20070101, end: 20070209

REACTIONS (6)
  - DYSKINESIA [None]
  - HALLUCINATION [None]
  - HEART RATE INCREASED [None]
  - HYPERHIDROSIS [None]
  - SPINAL DISORDER [None]
  - WOUND INFECTION STAPHYLOCOCCAL [None]
